FAERS Safety Report 18115494 (Version 2)
Quarter: 2020Q3

REPORT INFORMATION
  Report Type: Spontaneous
  Country: JP (occurrence: JP)
  Receive Date: 20200805
  Receipt Date: 20200824
  Transmission Date: 20201103
  Serious: Yes (Hospitalization, Other)
  Sender: FDA-Public Use
  Company Number: JP-BAYER-2020-127066

PATIENT
  Age: 65 Year
  Sex: Female
  Weight: 40 kg

DRUGS (3)
  1. STIVARGA [Suspect]
     Active Substance: REGORAFENIB
     Indication: GASTROINTESTINAL STROMAL TUMOUR
     Dosage: DAILY DOSE 4DF, 3?WEEK TREATMENT FOLLOWED BY 1?WEEK REST PERIOD
     Route: 048
     Dates: start: 20200127, end: 20200713
  2. THYRADIN?S [Concomitant]
     Active Substance: LEVOTHYROXINE
     Dosage: DAILY DOSE 100 ?G
     Route: 048
  3. AMLODIN [Concomitant]
     Active Substance: AMLODIPINE BESYLATE
     Dosage: DAILY DOSE 5 MG
     Route: 048

REACTIONS (10)
  - Cholestasis [Recovered/Resolved]
  - Gallbladder disorder [Unknown]
  - Jaundice [Recovered/Resolved]
  - Malaise [Recovered/Resolved]
  - Hepatic function abnormal [Recovered/Resolved]
  - Hepatitis acute [Recovered/Resolved]
  - Adrenal mass [Unknown]
  - Ascites [Recovered/Resolved]
  - Uterine leiomyoma [Unknown]
  - Renal cyst [Not Recovered/Not Resolved]

NARRATIVE: CASE EVENT DATE: 20200615
